FAERS Safety Report 17051680 (Version 11)
Quarter: 2024Q3

REPORT INFORMATION
  Report Type: Spontaneous
  Country: ES (occurrence: ES)
  Receive Date: 20191120
  Receipt Date: 20240701
  Transmission Date: 20241017
  Serious: Yes (Hospitalization, Other)
  Sender: MERCK
  Company Number: ES-009507513-1911ESP005723

PATIENT
  Age: 92 Year
  Sex: Female
  Weight: 46 kg

DRUGS (11)
  1. ZINPLAVA [Suspect]
     Active Substance: BEZLOTOXUMAB
     Indication: Infection prophylaxis
     Dosage: 10 MG/KG, SINGLE DOSE
     Dates: start: 20190320
  2. FIDAXOMICIN [Suspect]
     Active Substance: FIDAXOMICIN
     Indication: Clostridium difficile infection
     Dosage: UNK
     Route: 048
  3. VANCOMYCIN [Suspect]
     Active Substance: VANCOMYCIN
     Indication: Clostridium difficile infection
     Dosage: UNK
  4. CLOPIDOGREL [Concomitant]
     Active Substance: CLOPIDOGREL BISULFATE
     Indication: Aortic stenosis
     Dosage: DOSE 75 (UNIT NOT PROVIDED); TOTAL DAILY DOSE 75 (UNIT NOT PROVIDED)
     Route: 048
  5. ALLOPURINOL [Concomitant]
     Active Substance: ALLOPURINOL
     Indication: Gout
     Dosage: DOSE 100 (UNIT NOT PROVIDED); TOTAL DAILY DOSE 100 (UNIT NOT PROVIDED)
     Route: 048
  6. FUROSEMIDE [Concomitant]
     Active Substance: FUROSEMIDE
     Indication: Aortic stenosis
     Dosage: DOSE 40 (UNIT NOT PROVIDED); TOTAL DAILY DOSE 40 (UNIT NOT PROVIDED)
     Route: 048
  7. IRBESARTAN [Concomitant]
     Active Substance: IRBESARTAN
     Indication: Hypertension
     Dosage: DOSE 75 (UNIT NOT PROVIDED); TOTAL DAILY DOSE 75 (UNIT NOT PROVIDED)
     Route: 048
  8. FERROUS SULFATE [Concomitant]
     Active Substance: FERROUS SULFATE
     Indication: Anaemia
     Dosage: DOSE 575 (UNIT NOT PROVIDED); TOTAL DAILY DOSE 575 (UNIT NOT PROVIDED)
     Route: 048
  9. QUETIAPINE FUMARATE [Concomitant]
     Active Substance: QUETIAPINE FUMARATE
     Indication: Depression
     Dosage: DOSE 25 (UNIT NOT PROVIDED); TOTAL DAILY DOSE 25 (UNIT NOT PROVIDED)
     Route: 048
  10. BROMAZEPAM [Concomitant]
     Active Substance: BROMAZEPAM
     Indication: Depression
     Dosage: DOSE 1.5 (UNIT NOT PROVIDED), TOTAL DAILY DOSE 1.5 (UNIT NOT PROVIDED)
     Route: 048
  11. TRAMADOL HYDROCHLORIDE [Concomitant]
     Active Substance: TRAMADOL HYDROCHLORIDE
     Indication: Osteoporosis
     Dosage: DOSE 100 (UNIT NOT PROVIDED); TOTAL DAILY DOSE 20 (UNIT NOT PROVIDED)
     Route: 048

REACTIONS (2)
  - Treatment failure [Unknown]
  - Clostridium difficile infection [Recovered/Resolved]

NARRATIVE: CASE EVENT DATE: 20190510
